FAERS Safety Report 22120796 (Version 1)
Quarter: 2023Q1

REPORT INFORMATION
  Report Type: Other
  Country: None (occurrence: JP)
  Receive Date: 20230321
  Receipt Date: 20230321
  Transmission Date: 20230417
  Serious: Yes (Life-Threatening)
  Sender: FDA-Public Use
  Company Number: JP-B.Braun Medical Inc.-2139324

PATIENT
  Age: 63 Year
  Sex: Male

DRUGS (10)
  1. SODIUM CHLORIDE [Suspect]
     Active Substance: SODIUM CHLORIDE
     Indication: Dehydration
  2. LEVOTHYROXINE SODIUM [Concomitant]
     Active Substance: LEVOTHYROXINE SODIUM
  3. FLUOROURACIL [Concomitant]
     Active Substance: FLUOROURACIL
  4. CISPLATIN [Concomitant]
     Active Substance: CISPLATIN
  5. CETUXIMAB [Concomitant]
     Active Substance: CETUXIMAB
  6. DEXAMETHASONE [Concomitant]
     Active Substance: DEXAMETHASONE
  7. CHLORPHENIRAMINE [Concomitant]
     Active Substance: CHLORPHENIRAMINE
  8. ATROPINE [Concomitant]
     Active Substance: ATROPINE
  9. HYDROCORTISONE SODIUM SUCCINATE [Concomitant]
     Active Substance: HYDROCORTISONE SODIUM SUCCINATE
  10. APREPITANT [Concomitant]
     Active Substance: APREPITANT

REACTIONS (1)
  - Drug ineffective [Unknown]
